FAERS Safety Report 24252454 (Version 1)
Quarter: 2024Q3

REPORT INFORMATION
  Report Type: Spontaneous
  Country: IN (occurrence: IN)
  Receive Date: 20240827
  Receipt Date: 20240827
  Transmission Date: 20241017
  Serious: Yes (Hospitalization)
  Sender: ROCHE
  Company Number: IN-ROCHE-3552624

PATIENT
  Age: 73 Year
  Sex: Male

DRUGS (1)
  1. TECENTRIQ [Suspect]
     Active Substance: ATEZOLIZUMAB
     Indication: Prostate cancer metastatic
     Route: 042
     Dates: start: 20240416

REACTIONS (2)
  - Off label use [Unknown]
  - Platelet count decreased [Unknown]
